FAERS Safety Report 15266393 (Version 1)
Quarter: 2018Q3

REPORT INFORMATION
  Report Type: Report from Study
  Country: FR (occurrence: FR)
  Receive Date: 20180810
  Receipt Date: 20180810
  Transmission Date: 20181010
  Serious: Yes (Other)
  Sender: FDA-Public Use
  Company Number: FR-GILEAD-2018-0355033

PATIENT
  Age: 62 Year
  Sex: Male

DRUGS (1)
  1. LEDIPASVIR/SOFOSBUVIR [Suspect]
     Active Substance: LEDIPASVIR\SOFOSBUVIR
     Indication: HEPATITIS C
     Dosage: UNK
     Route: 048
     Dates: start: 201409, end: 201501

REACTIONS (4)
  - Psychotic disorder [Unknown]
  - Overdose [Recovered/Resolved]
  - Irritability [Unknown]
  - Sleep disorder [Unknown]

NARRATIVE: CASE EVENT DATE: 201411
